FAERS Safety Report 4348201-5 (Version None)
Quarter: 2004Q2

REPORT INFORMATION
  Report Type: 
  Country: None (occurrence: None)
  Receive Date: 20040422
  Receipt Date: 20040317
  Transmission Date: 20050107
  Serious: Yes (Other)
  Sender: FDA-Public Use
  Company Number: 2004209357US

PATIENT
  Sex: Male

DRUGS (1)
  1. DETROL LA [Suspect]
     Dosage: ORAL
     Route: 048

REACTIONS (2)
  - CLAVICLE FRACTURE [None]
  - CONVULSION [None]
